FAERS Safety Report 22315183 (Version 1)
Quarter: 2023Q2

REPORT INFORMATION
  Report Type: Spontaneous
  Country: CA (occurrence: CA)
  Receive Date: 20230512
  Receipt Date: 20230512
  Transmission Date: 20230722
  Serious: Yes (Other)
  Sender: FDA-Public Use
  Company Number: CA-AMERICAN REGENT INC-2022003563

PATIENT
  Age: 47 Year
  Sex: Female

DRUGS (1)
  1. VENOFER [Suspect]
     Active Substance: IRON SUCROSE
     Indication: Blood iron decreased
     Dosage: 300 MILLIGRAM
     Dates: start: 20221201, end: 20221201

REACTIONS (3)
  - Rash macular [Recovered/Resolved]
  - Paraesthesia [Recovered/Resolved]
  - Product quality issue [Unknown]

NARRATIVE: CASE EVENT DATE: 20221201
